FAERS Safety Report 12771132 (Version 1)
Quarter: 2016Q3

REPORT INFORMATION
  Report Type: Spontaneous
  Country: DK (occurrence: DK)
  Receive Date: 20160922
  Receipt Date: 20160922
  Transmission Date: 20161109
  Serious: Yes (Other)
  Sender: FDA-Public Use
  Company Number: PHHY2016DK127736

PATIENT
  Age: 43 Year
  Sex: Female

DRUGS (9)
  1. RITALIN [Suspect]
     Active Substance: METHYLPHENIDATE HYDROCHLORIDE
     Dosage: 30 MG, QD
     Route: 048
  2. RITALIN [Suspect]
     Active Substance: METHYLPHENIDATE HYDROCHLORIDE
     Dosage: 15 MG, QD
     Route: 048
  3. RITALIN [Suspect]
     Active Substance: METHYLPHENIDATE HYDROCHLORIDE
     Dosage: 10 MG, 2-3 TIMES A DAY
     Route: 048
  4. NOVOFEM [Concomitant]
     Active Substance: ESTRADIOL HEMIHYDRATE\NORETHINDRONE ACETATE
     Indication: MENOPAUSAL DISORDER
     Route: 065
  5. DIAZEPAM. [Concomitant]
     Active Substance: DIAZEPAM
     Indication: SLEEP DISORDER
     Route: 065
     Dates: start: 20101013, end: 20101015
  6. DERMOVAT [Concomitant]
     Active Substance: CLOBETASOL
     Indication: DERMATITIS ATOPIC
     Route: 065
  7. ZITHROMAX [Concomitant]
     Active Substance: AZITHROMYCIN DIHYDRATE
     Indication: PHARYNGITIS
     Route: 065
  8. OMEPRAZOL//OMEPRAZOLE [Concomitant]
     Indication: GASTROINTESTINAL DISORDER
     Route: 065
  9. RITALIN [Suspect]
     Active Substance: METHYLPHENIDATE HYDROCHLORIDE
     Indication: NARCOLEPSY
     Dosage: UNK
     Route: 048
     Dates: start: 1991

REACTIONS (26)
  - Muscle tightness [Unknown]
  - Mood altered [Unknown]
  - Restlessness [Unknown]
  - Oropharyngeal pain [Unknown]
  - Pruritus [Unknown]
  - Sleep disorder [Unknown]
  - Tachyphrenia [Unknown]
  - Muscle contractions involuntary [Unknown]
  - Pharyngitis [Unknown]
  - Nervousness [Unknown]
  - Dermatitis atopic [Unknown]
  - Abdominal pain [Unknown]
  - Hot flush [Unknown]
  - Vision blurred [Unknown]
  - Palpitations [Unknown]
  - Muscular weakness [Unknown]
  - Feeling cold [Unknown]
  - Myalgia [Unknown]
  - Fatigue [Unknown]
  - Mood swings [Unknown]
  - Depression [Unknown]
  - Headache [Unknown]
  - Glaucoma [Unknown]
  - Visual impairment [Unknown]
  - Libido decreased [Unknown]
  - Tremor [Unknown]

NARRATIVE: CASE EVENT DATE: 20081204
